FAERS Safety Report 9775378 (Version 1)
Quarter: 2013Q4

REPORT INFORMATION
  Report Type: Spontaneous
  Country: US (occurrence: US)
  Receive Date: 20131220
  Receipt Date: 20131220
  Transmission Date: 20140711
  Serious: No
  Sender: FDA-Public Use
  Company Number: US-GALDERMA-US13003321

PATIENT
  Sex: Female

DRUGS (7)
  1. MIRVASO (BRIMONIDINE) TOPICAL GEL, 0.33% [Suspect]
     Indication: ROSACEA
     Dosage: 0.33%
     Route: 061
     Dates: start: 20131015, end: 20131017
  2. TOPAMAX [Concomitant]
     Dosage: 0.25 MG
     Route: 048
  3. RENOVA [Concomitant]
     Dosage: 0.05
  4. OBAGI CLEAR [Concomitant]
  5. SUNSCREEN [Concomitant]
  6. GLYTONE [Concomitant]
  7. TONER NO ALCOHOL [Concomitant]

REACTIONS (4)
  - Condition aggravated [Not Recovered/Not Resolved]
  - Erythema [Not Recovered/Not Resolved]
  - Skin burning sensation [Not Recovered/Not Resolved]
  - Drug ineffective [Not Recovered/Not Resolved]
